FAERS Safety Report 6902118-8 (Version None)
Quarter: 2010Q3

REPORT INFORMATION
  Report Type: 
  Country: None (occurrence: None)
  Receive Date: 20100803
  Receipt Date: 20080418
  Transmission Date: 20110219
  Serious: No
  Sender: FDA-Public Use
  Company Number: US-PFIZER INC-2008035944

PATIENT
  Age: 60 Year
  Sex: Male

DRUGS (2)
  1. LYRICA [Suspect]
     Indication: SPINAL COLUMN STENOSIS
     Dates: start: 20070601, end: 20080301
  2. CELEBREX [Concomitant]
     Route: 048
     Dates: start: 20070601, end: 20080301

REACTIONS (1)
  - THROMBOCYTOPENIA [None]
